FAERS Safety Report 5408250-2 (Version None)
Quarter: 2007Q3

REPORT INFORMATION
  Report Type: 
  Country: None (occurrence: None)
  Receive Date: 20070808
  Receipt Date: 20070803
  Transmission Date: 20080115
  Serious: Yes (Life-Threatening, Hospitalization)
  Sender: FDA-Public Use
  Company Number: US-SANOFI-SYNTHELABO-F01200700901

PATIENT
  Sex: Male

DRUGS (4)
  1. LORTAB [Concomitant]
     Route: 065
  2. FLUOROURACIL [Suspect]
     Route: 042
     Dates: start: 20070627, end: 20070627
  3. BEVACIZUMAB [Suspect]
     Route: 042
     Dates: start: 20070627, end: 20070627
  4. OXALIPLATIN [Suspect]
     Indication: COLORECTAL CANCER
     Route: 042
     Dates: start: 20070627, end: 20070627

REACTIONS (1)
  - GASTROINTESTINAL PERFORATION [None]
